FAERS Safety Report 7068160-4 (Version None)
Quarter: 2010Q4

REPORT INFORMATION
  Report Type: 
  Country: None (occurrence: None)
  Receive Date: 20101027
  Receipt Date: 20101027
  Transmission Date: 20110411
  Serious: Yes (Life-Threatening, Disabling, Other)
  Sender: FDA-Public Use
  Company Number: None

PATIENT
  Age: 46 Year
  Sex: Female
  Weight: 87.0906 kg

DRUGS (2)
  1. SOLU-MEDROL [Suspect]
     Indication: MULTIPLE SCLEROSIS
     Dosage: 1000MG EACH DAY FOR 5 DAYS IV
     Route: 042
  2. SOLU-MEDROL [Suspect]
     Indication: MULTIPLE SCLEROSIS
     Dosage: 500 MG EACH DAY FOR 3 DAYS IV
     Route: 042

REACTIONS (6)
  - DIABETES MELLITUS [None]
  - DISSOCIATIVE DISORDER [None]
  - DYSPNOEA [None]
  - HAIR GROWTH ABNORMAL [None]
  - INJECTION SITE INFECTION [None]
  - URTICARIA [None]
